FAERS Safety Report 18339250 (Version 4)
Quarter: 2021Q4

REPORT INFORMATION
  Report Type: Spontaneous
  Country: US (occurrence: US)
  Receive Date: 20201002
  Receipt Date: 20211230
  Transmission Date: 20220303
  Serious: Yes (Hospitalization)
  Sender: FDA-Public Use
  Company Number: US-PFIZER INC-2020377287

PATIENT
  Age: 61 Year
  Sex: Female
  Weight: 108.41 kg

DRUGS (1)
  1. LYRICA [Suspect]
     Active Substance: PREGABALIN
     Dosage: 75 MG, 2X/DAY (CAPSULE BY MOUTH TWO TIMES DAILY)
     Route: 048

REACTIONS (3)
  - COVID-19 [Recovering/Resolving]
  - Gait disturbance [Unknown]
  - Oropharyngeal discomfort [Unknown]

NARRATIVE: CASE EVENT DATE: 20210901
